FAERS Safety Report 17105028 (Version 1)
Quarter: 2019Q4

REPORT INFORMATION
  Report Type: Spontaneous
  Country: US (occurrence: US)
  Receive Date: 20191108
  Receipt Date: 20191108
  Transmission Date: 20200122
  Serious: No
  Sender: FDA-Public Use
  Company Number: None

PATIENT
  Age: 95 Year
  Sex: Female

DRUGS (1)
  1. FORTEO [Suspect]
     Active Substance: TERIPARATIDE
     Indication: PRODUCT USED FOR UNKNOWN INDICATION
     Route: 058
     Dates: start: 20190826, end: 20191018

REACTIONS (6)
  - Dyspnoea [None]
  - Dizziness [None]
  - Fall [None]
  - Insomnia [None]
  - Cognitive disorder [None]
  - Wheezing [None]

NARRATIVE: CASE EVENT DATE: 20190915
